FAERS Safety Report 6711158-3 (Version None)
Quarter: 2010Q2

REPORT INFORMATION
  Report Type: 
  Country: None (occurrence: None)
  Receive Date: 20100505
  Receipt Date: 20100424
  Transmission Date: 20101027
  Serious: Yes (Other)
  Sender: FDA-Public Use
  Company Number: US-JNJFOC-20100407476

PATIENT
  Sex: Female

DRUGS (2)
  1. REMICADE [Suspect]
     Indication: CROHN'S DISEASE
     Dosage: DOSE, DATE AND FREQUENCY UNSPECIFIED
     Route: 042
  2. REMICADE [Suspect]
     Dosage: DOSE, DATE AND FREQUENCY UNSPECIFIED
     Route: 042

REACTIONS (3)
  - FALL [None]
  - HEAD INJURY [None]
  - STAPHYLOCOCCAL INFECTION [None]
